FAERS Safety Report 15854200 (Version 1)
Quarter: 2019Q1

REPORT INFORMATION
  Report Type: Spontaneous
  Country: US (occurrence: US)
  Receive Date: 20190121
  Receipt Date: 20190121
  Transmission Date: 20190417
  Serious: Yes (Disabling)
  Sender: FDA-Public Use
  Company Number: None

PATIENT
  Age: 53 Year
  Sex: Female

DRUGS (3)
  1. METHOTREXATE. [Concomitant]
     Active Substance: METHOTREXATE
  2. FOLIC ACID. [Concomitant]
     Active Substance: FOLIC ACID
  3. MONISTAT 1 COMBINATION PACK [Suspect]
     Active Substance: MICONAZOLE NITRATE
     Indication: FUNGAL INFECTION
     Dosage: ?          OTHER FREQUENCY:ONE APPLICATION;?
     Route: 067
     Dates: start: 20180712, end: 20180712

REACTIONS (3)
  - Application site swelling [None]
  - Application site discomfort [None]
  - Application site pain [None]

NARRATIVE: CASE EVENT DATE: 20180712
